FAERS Safety Report 4895795-7 (Version None)
Quarter: 2006Q1

REPORT INFORMATION
  Report Type: 
  Country: None (occurrence: None)
  Receive Date: 20060125
  Receipt Date: 20060110
  Transmission Date: 20060701
  Serious: Yes (Hospitalization, Other)
  Sender: FDA-Public Use
  Company Number: DE-2005-026414

PATIENT
  Age: 33 Year
  Sex: Female

DRUGS (1)
  1. BETASERON [Suspect]
     Indication: RELAPSING-REMITTING MULTIPLE SCLEROSIS
     Dosage: 1 AMP, EVERY 2D, SUBCUTANEOUS
     Route: 058
     Dates: start: 20030107

REACTIONS (4)
  - ANGINA PECTORIS [None]
  - CARDIOMYOPATHY [None]
  - DYSPNOEA [None]
  - OEDEMA PERIPHERAL [None]
